FAERS Safety Report 4844703-3 (Version None)
Quarter: 2005Q4

REPORT INFORMATION
  Report Type: 
  Country: None (occurrence: None)
  Receive Date: 20051125
  Receipt Date: 20051028
  Transmission Date: 20060501
  Serious: Yes (Hospitalization, Other)
  Sender: FDA-Public Use
  Company Number: CIO05018067

PATIENT
  Age: 93 Year
  Sex: Female

DRUGS (1)
  1. METAMUCIL-2 [Suspect]
     Dosage: 1 TBSP, 2 /DAY, ORAL
     Route: 048

REACTIONS (8)
  - ABDOMINAL PAIN LOWER [None]
  - ANGER [None]
  - ASTHENIA [None]
  - CONDITION AGGRAVATED [None]
  - DEPRESSED MOOD [None]
  - GASTROINTESTINAL OBSTRUCTION [None]
  - MOBILITY DECREASED [None]
  - PROCTALGIA [None]
